FAERS Safety Report 18233917 (Version 1)
Quarter: 2020Q3

REPORT INFORMATION
  Report Type: Spontaneous
  Country: CN (occurrence: CN)
  Receive Date: 20200904
  Receipt Date: 20200904
  Transmission Date: 20201103
  Serious: Yes (Disabling)
  Sender: FDA-Public Use
  Company Number: CN-PFIZER INC-2020342081

PATIENT
  Age: 33 Year
  Sex: Female
  Weight: 63 kg

DRUGS (2)
  1. MEPEM [Suspect]
     Active Substance: MEROPENEM
     Indication: POST PROCEDURAL INFECTION
     Dosage: 1 G, 3X/DAY
     Route: 041
     Dates: start: 20200806, end: 20200814
  2. MEPEM [Suspect]
     Active Substance: MEROPENEM
     Dosage: 0.5 G, 3X/DAY
     Route: 041
     Dates: start: 20200815, end: 20200817

REACTIONS (1)
  - Hepatic function abnormal [Not Recovered/Not Resolved]

NARRATIVE: CASE EVENT DATE: 20200817
